FAERS Safety Report 11456047 (Version 2)
Quarter: 2015Q4

REPORT INFORMATION
  Report Type: Spontaneous
  Country: AT (occurrence: AT)
  Receive Date: 20150903
  Receipt Date: 20151007
  Transmission Date: 20160304
  Serious: Yes (Hospitalization, Other)
  Sender: FDA-Public Use
  Company Number: AT-INCYTE CORPORATION-2015IN004344

PATIENT
  Age: 73 Year
  Sex: Male

DRUGS (7)
  1. FINASTERIDE. [Suspect]
     Active Substance: FINASTERIDE
     Indication: BENIGN PROSTATIC HYPERPLASIA
     Dosage: 5 MG, UNK
     Route: 065
  2. VALACICLOVIR [Concomitant]
     Active Substance: VALACYCLOVIR HYDROCHLORIDE
     Indication: HERPES VIRUS INFECTION
     Dosage: 1000 MG, UNK
     Route: 048
     Dates: start: 201507
  3. JAKAFI [Suspect]
     Active Substance: RUXOLITINIB
     Dosage: 15 MG, BID
     Route: 065
     Dates: start: 201502, end: 201505
  4. ALNA RET [Concomitant]
     Indication: BENIGN PROSTATIC HYPERPLASIA
     Dosage: 0.4 MG, UNK
     Route: 048
  5. JAKAFI [Suspect]
     Active Substance: RUXOLITINIB
     Indication: MYELOFIBROSIS
     Dosage: 20 MG, BID
     Route: 065
     Dates: start: 201411
  6. ASPIRIN. [Suspect]
     Active Substance: ASPIRIN
     Indication: THROMBOSIS
     Dosage: 100 MG, UNK
     Route: 065
     Dates: end: 201506
  7. ALLOPURINOL. [Concomitant]
     Active Substance: ALLOPURINOL
     Indication: PRODUCT USED FOR UNKNOWN INDICATION
     Dosage: 200 MG, UNK
     Route: 048

REACTIONS (3)
  - Depression [Not Recovered/Not Resolved]
  - Acute myeloid leukaemia [Not Recovered/Not Resolved]
  - Herpes simplex [Not Recovered/Not Resolved]

NARRATIVE: CASE EVENT DATE: 201506
